FAERS Safety Report 4814725-7 (Version None)
Quarter: 2005Q4

REPORT INFORMATION
  Report Type: 
  Country: None (occurrence: None)
  Receive Date: 20051028
  Receipt Date: 20041216
  Transmission Date: 20060501
  Serious: No
  Sender: FDA-Public Use
  Company Number: US-GLAXOSMITHKLINE-A0537610A

PATIENT
  Age: 72 Year
  Sex: Female

DRUGS (5)
  1. ADVAIR DISKUS 100/50 [Suspect]
     Indication: ASTHMA
     Route: 055
  2. PREDNISONE [Concomitant]
  3. ANTIBIOTIC [Concomitant]
  4. SINGULAIR [Concomitant]
  5. LISINOPRIL [Concomitant]

REACTIONS (3)
  - DECREASED ACTIVITY [None]
  - FATIGUE [None]
  - WHEEZING [None]
